FAERS Safety Report 4887470-X (Version None)
Quarter: 2006Q1

REPORT INFORMATION
  Report Type: 
  Country: None (occurrence: None)
  Receive Date: 20060118
  Receipt Date: 20060102
  Transmission Date: 20060701
  Serious: Yes (Hospitalization)
  Sender: FDA-Public Use
  Company Number: 108676ISR

PATIENT
  Age: 72 Year
  Sex: Male

DRUGS (8)
  1. VINCRISTINE [Suspect]
     Indication: BURKITT'S LYMPHOMA
     Dosage: 2 MILLIGRAM, INTRAVENOUS (NOS)
     Route: 042
     Dates: start: 20051206, end: 20051206
  2. METHOTREXATE [Suspect]
     Indication: BURKITT'S LYMPHOMA
     Dosage: 5.6 GRAM/15 MILLIGRAM, INTRAVENOUS (NOS)/INTRATHECAL
     Route: 042
     Dates: start: 20051206, end: 20051206
  3. METHOTREXATE [Suspect]
     Indication: BURKITT'S LYMPHOMA
     Dosage: 5.6 GRAM/15 MILLIGRAM, INTRAVENOUS (NOS)/INTRATHECAL
     Route: 042
     Dates: start: 20051207, end: 20051207
  4. CYTARABINE [Suspect]
     Indication: BURKITT'S LYMPHOMA
     Dosage: 40 MILLIGRAM, INTRATHECAL
     Route: 037
     Dates: start: 20051207, end: 20051207
  5. CYCLOPHOSPHAMIDE [Suspect]
     Indication: BURKITT'S LYMPHOMA
     Dosage: 930 MILLIGRAM TID; INTRAVENOUS (NOS)
     Route: 042
     Dates: start: 20051207, end: 20051209
  6. DOXORUBICIN [Suspect]
     Indication: BURKITT'S LYMPHOMA
     Dosage: 110 MILLIGRAM; INTRAVENOUS (NOS)
     Route: 042
     Dates: start: 20051207, end: 20051207
  7. FOLINIC ACID [Concomitant]
  8. HYDROCORTISONE [Concomitant]

REACTIONS (7)
  - DIALYSIS [None]
  - DRUG CLEARANCE DECREASED [None]
  - HAEMOPTYSIS [None]
  - PANCYTOPENIA [None]
  - PNEUMONIA [None]
  - RENAL FAILURE ACUTE [None]
  - RESPIRATORY DISTRESS [None]
